FAERS Safety Report 4801467-7 (Version None)
Quarter: 2005Q4

REPORT INFORMATION
  Report Type: 
  Country: None (occurrence: None)
  Receive Date: 20051018
  Receipt Date: 20051006
  Transmission Date: 20060501
  Serious: Yes (Other)
  Sender: FDA-Public Use
  Company Number: US-JNJFOC-20051001380

PATIENT
  Sex: Female
  Weight: 63.96 kg

DRUGS (21)
  1. INFLIXIMAB [Suspect]
     Indication: RHEUMATOID ARTHRITIS
     Route: 042
  2. METHOTREXATE [Concomitant]
  3. SYNTHROID [Concomitant]
  4. PLAQUENIL [Concomitant]
  5. BENICAR [Concomitant]
  6. DIGOXIN [Concomitant]
  7. TOPROL-XL [Concomitant]
  8. RYTHMAL [Concomitant]
  9. FOLIC ACID [Concomitant]
  10. CITRICAL [Concomitant]
  11. FOSAMAX [Concomitant]
  12. MULTI-VITAMIN [Concomitant]
  13. MULTI-VITAMIN [Concomitant]
  14. MULTI-VITAMIN [Concomitant]
  15. MULTI-VITAMIN [Concomitant]
  16. MULTI-VITAMIN [Concomitant]
  17. MULTI-VITAMIN [Concomitant]
  18. MULTI-VITAMIN [Concomitant]
  19. MULTI-VITAMIN [Concomitant]
  20. VITAMIN E [Concomitant]
  21. ASCORBIC ACID [Concomitant]

REACTIONS (1)
  - SQUAMOUS CELL CARCINOMA [None]
